FAERS Safety Report 8616555 (Version 2)
Quarter: 2013Q2

REPORT INFORMATION
  Report Type: Spontaneous
  Country: US (occurrence: US)
  Receive Date: 20120615
  Receipt Date: 20130618
  Transmission Date: 20140414
  Serious: Yes (Disabling)
  Sender: FDA-Public Use
  Company Number: US-ASTRAZENECA-2012SE35929

PATIENT
  Age: 54 Year
  Sex: 0

DRUGS (3)
  1. NEXIUM [Suspect]
     Dosage: EVERY DAY
     Route: 048
     Dates: start: 2007, end: 2011
  2. PRILOSEC [Suspect]
     Route: 048
  3. ZANTAC [Concomitant]

REACTIONS (3)
  - Diabetes mellitus [Unknown]
  - Osteoporosis [Unknown]
  - Lower limb fracture [Unknown]
